FAERS Safety Report 26043627 (Version 1)
Quarter: 2025Q4

REPORT INFORMATION
  Report Type: Spontaneous
  Country: GB (occurrence: GB)
  Receive Date: 20251113
  Receipt Date: 20251113
  Transmission Date: 20260117
  Serious: Yes (Hospitalization)
  Sender: CELLTRION
  Company Number: GB-CELLTRION INC.-2024GB023031

PATIENT

DRUGS (2)
  1. YUFLYMA [Suspect]
     Active Substance: ADALIMUMAB-AATY
     Indication: Crohn^s disease
     Dosage: LAST INJECTION IN AUGUST
     Route: 058
  2. YUFLYMA [Suspect]
     Active Substance: ADALIMUMAB-AATY

REACTIONS (4)
  - Hospitalisation [Unknown]
  - Malaise [Unknown]
  - Product use issue [Unknown]
  - Product dose omission issue [Unknown]
